FAERS Safety Report 25592198 (Version 1)
Quarter: 2025Q3

REPORT INFORMATION
  Report Type: Spontaneous
  Country: US (occurrence: None)
  Receive Date: 20250721
  Receipt Date: 20250721
  Transmission Date: 20251021
  Serious: Yes (Life-Threatening, Disabling)
  Sender: FDA-CTU
  Company Number: None

PATIENT
  Age: 82 Year
  Sex: Male

DRUGS (1)
  1. INGREZZA [Suspect]
     Active Substance: VALBENAZINE DITOSYLATE
     Indication: Tardive dyskinesia
     Dosage: 1 DAILY  ONCE DAILY MOUTH
     Route: 048
     Dates: start: 20230818, end: 20230822

REACTIONS (5)
  - Nerve injury [None]
  - Pain [None]
  - Headache [None]
  - Musculoskeletal stiffness [None]
  - Gait disturbance [None]

NARRATIVE: CASE EVENT DATE: 20230821
